FAERS Safety Report 24014322 (Version 1)
Quarter: 2024Q2

REPORT INFORMATION
  Report Type: Spontaneous
  Country: US (occurrence: US)
  Receive Date: 20240626
  Receipt Date: 20240626
  Transmission Date: 20240716
  Serious: Yes (Life-Threatening, Hospitalization)
  Sender: FDA-Public Use
  Company Number: US-MYLANLABS-2024M1057693

PATIENT
  Age: 65 Year
  Sex: Female

DRUGS (6)
  1. AMLODIPINE [Suspect]
     Active Substance: AMLODIPINE BESYLATE
     Indication: Product used for unknown indication
     Dosage: 10 MILLIGRAM
     Route: 065
  2. VALPROIC ACID [Suspect]
     Active Substance: VALPROIC ACID
     Indication: Product used for unknown indication
     Dosage: UNK
     Route: 065
  3. EPINEPHRINE [Suspect]
     Active Substance: EPINEPHRINE
     Indication: Intentional overdose
     Dosage: UNK
     Route: 065
  4. LISINOPRIL [Suspect]
     Active Substance: LISINOPRIL
     Indication: Product used for unknown indication
     Dosage: UNK
     Route: 065
  5. VASOPRESSIN [Suspect]
     Active Substance: VASOPRESSIN
     Indication: Intentional overdose
     Dosage: UNK
     Route: 065
  6. METHYLENE BLUE [Concomitant]
     Active Substance: METHYLENE BLUE
     Indication: Vasoplegia syndrome
     Dosage: 0.5 MILLIGRAM/KILOGRAM, Q6H, INTRAVENOUS BOLUS
     Route: 042

REACTIONS (8)
  - Hyperglycaemia [Unknown]
  - Lactic acidosis [Unknown]
  - Leukocytosis [Unknown]
  - Blood creatinine increased [Unknown]
  - Vasoplegia syndrome [Unknown]
  - Intentional overdose [Unknown]
  - Drug ineffective [Unknown]
  - Suicide attempt [Unknown]
